FAERS Safety Report 6453100-9 (Version None)
Quarter: 2009Q4

REPORT INFORMATION
  Report Type: 
  Country: None (occurrence: None)
  Receive Date: 20091123
  Receipt Date: 20091123
  Transmission Date: 20100525
  Serious: Yes (Other)
  Sender: FDA-Public Use
  Company Number: None

PATIENT
  Age: 45 Year
  Sex: Male
  Weight: 112.0385 kg

DRUGS (1)
  1. OXYCODONE HCL [Suspect]
     Indication: BACK PAIN
     Dosage: 1 TO 3 TABLETS EVERY 4 HOURS PRN PO
     Route: 048
     Dates: start: 20091116, end: 20091117

REACTIONS (4)
  - DRUG INEFFECTIVE [None]
  - INCORRECT DRUG ADMINISTRATION DURATION [None]
  - NAUSEA [None]
  - SOMNOLENCE [None]
